FAERS Safety Report 7256155-7 (Version None)
Quarter: 2011Q1

REPORT INFORMATION
  Report Type: 
  Country: None (occurrence: None)
  Receive Date: 20110129
  Receipt Date: 20100601
  Transmission Date: 20110831
  Serious: No
  Sender: FDA-Public Use
  Company Number: US-ABBOTT-10P-163-0648851-00

PATIENT
  Sex: Female
  Weight: 59.02 kg

DRUGS (7)
  1. NORVASC [Concomitant]
     Indication: HYPERTENSION
     Route: 048
  2. HUMIRA [Suspect]
     Indication: RHEUMATOID ARTHRITIS
     Route: 058
     Dates: start: 20070101
  3. MESTINON [Concomitant]
     Indication: MYASTHENIA GRAVIS
     Route: 048
  4. ASPIRIN [Concomitant]
     Indication: CEREBROVASCULAR ACCIDENT
     Dosage: ONCE DAILY-CAN TAKE SMALL DOSES
     Route: 048
  5. BONIVA [Concomitant]
     Indication: OSTEOPOROSIS
     Route: 048
  6. ACIPHEX [Concomitant]
     Indication: GASTROOESOPHAGEAL REFLUX DISEASE
     Route: 048
  7. VITAMIN E [Concomitant]
     Indication: VITAMIN SUPPLEMENTATION
     Route: 048

REACTIONS (5)
  - INJECTION SITE PAIN [None]
  - DIARRHOEA [None]
  - SKIN EXFOLIATION [None]
  - ABDOMINAL PAIN UPPER [None]
  - ERYTHEMA [None]
